FAERS Safety Report 7235775-X (Version None)
Quarter: 2011Q1

REPORT INFORMATION
  Report Type: 
  Country: None (occurrence: None)
  Receive Date: 20110110
  Receipt Date: 20101230
  Transmission Date: 20110831
  Serious: Yes (Death, Hospitalization)
  Sender: FDA-Public Use
  Company Number: 2009AC000519

PATIENT
  Age: 40 Year
  Sex: Male
  Weight: 123.832 kg

DRUGS (11)
  1. COUMADIN [Concomitant]
  2. PROPYLTHIOURACIL [Concomitant]
  3. METOPROLOL TARTRATE [Concomitant]
  4. LOTREL [Concomitant]
  5. LOTENSIN [Concomitant]
  6. FUROSEMIDE [Concomitant]
  7. DIGOXIN [Suspect]
     Indication: ATRIAL FIBRILLATION
     Dosage: .5 MG; QD; PO
     Route: 048
     Dates: start: 20071001
  8. BENZAPRIL [Concomitant]
  9. CATAPRES [Concomitant]
  10. DIGOXIN [Suspect]
     Indication: ATRIAL FIBRILLATION
     Dosage: 0.25 MG; QD; PO
     Route: 048
     Dates: start: 20071008, end: 20071214
  11. POTASSIUM CHLORIDE [Concomitant]

REACTIONS (40)
  - INJURY [None]
  - VOMITING [None]
  - WEIGHT DECREASED [None]
  - SUDDEN DEATH [None]
  - TOXIC NODULAR GOITRE [None]
  - VENTRICULAR FIBRILLATION [None]
  - TRICUSPID VALVE INCOMPETENCE [None]
  - PAIN [None]
  - NIGHT SWEATS [None]
  - TREATMENT NONCOMPLIANCE [None]
  - ABDOMINAL DISTENSION [None]
  - HYPERTHYROIDISM [None]
  - HEART RATE IRREGULAR [None]
  - ANHEDONIA [None]
  - DEFORMITY [None]
  - IMPAIRED WORK ABILITY [None]
  - NASAL CONGESTION [None]
  - DYSPHONIA [None]
  - FALL [None]
  - DECREASED APPETITE [None]
  - PULMONARY CONGESTION [None]
  - VISUAL IMPAIRMENT [None]
  - ARRHYTHMIA [None]
  - PRURITUS [None]
  - HYPERTENSION [None]
  - AORTIC DILATATION [None]
  - NAUSEA [None]
  - ATRIAL FIBRILLATION [None]
  - LEFT VENTRICULAR HYPERTROPHY [None]
  - CARDIAC ARREST [None]
  - GINGIVAL BLEEDING [None]
  - CARDIAC FAILURE CONGESTIVE [None]
  - ANXIETY [None]
  - ECONOMIC PROBLEM [None]
  - CONGESTIVE CARDIOMYOPATHY [None]
  - ANAEMIA [None]
  - DIARRHOEA [None]
  - HYPOTENSION [None]
  - ELECTROCARDIOGRAM ABNORMAL [None]
  - REFUSAL OF TREATMENT BY PATIENT [None]
